FAERS Safety Report 26194490 (Version 1)
Quarter: 2025Q4

REPORT INFORMATION
  Report Type: Spontaneous
  Country: AU (occurrence: AU)
  Receive Date: 20251224
  Receipt Date: 20251224
  Transmission Date: 20260117
  Serious: Yes (Other)
  Sender: SANOFI AVENTIS
  Company Number: AU-DialogSolutions-SAAVPROD-PI854928-C1

PATIENT
  Age: 35 Year
  Sex: Male

DRUGS (6)
  1. RIFAMPIN [Suspect]
     Active Substance: RIFAMPIN
     Indication: Mycobacterium marinum infection
     Dosage: 300 MG, BID
  2. DOXYCYCLINE [Suspect]
     Active Substance: DOXYCYCLINE
     Indication: Mycobacterium marinum infection
     Dosage: 100 MG, QD
  3. CLARITHROMYCIN [Suspect]
     Active Substance: CLARITHROMYCIN
     Indication: Mycobacterium marinum infection
     Dosage: 500 MG, QD
  4. DOXORUBICIN [Concomitant]
     Active Substance: DOXORUBICIN
     Indication: T-cell lymphoma
     Dosage: UNK
  5. METHOTREXATE [Concomitant]
     Active Substance: METHOTREXATE
     Indication: T-cell lymphoma
     Dosage: UNK
  6. ACITRETIN [Concomitant]
     Active Substance: ACITRETIN
     Dosage: UNK

REACTIONS (2)
  - Multiple organ dysfunction syndrome [Unknown]
  - Off label use [Unknown]
